FAERS Safety Report 11208216 (Version 1)
Quarter: 2015Q2

REPORT INFORMATION
  Report Type: Spontaneous
  Country: JP (occurrence: JP)
  Receive Date: 20150622
  Receipt Date: 20150622
  Transmission Date: 20150821
  Serious: Yes (Death, Other)
  Sender: FDA-Public Use
  Company Number: JP-CIPLA LTD.-2015JP04957

PATIENT

DRUGS (4)
  1. TEGAFUR [Suspect]
     Active Substance: TEGAFUR
     Indication: CHOLANGIOCARCINOMA
     Route: 065
  2. GIMESTAT [Suspect]
     Active Substance: GIMERACIL
     Indication: CHOLANGIOCARCINOMA
     Route: 065
  3. GEMCITABINE [Suspect]
     Active Substance: GEMCITABINE\GEMCITABINE HYDROCHLORIDE
     Indication: CHOLANGIOCARCINOMA
     Dosage: 5 DOSES, 43 DAYS
     Route: 065
  4. OTASTAT POTASSIUM [Suspect]
     Active Substance: OTERACIL POTASSIUM
     Indication: CHOLANGIOCARCINOMA
     Route: 065

REACTIONS (2)
  - Cholangiocarcinoma [Fatal]
  - Pulmonary toxicity [Unknown]
